FAERS Safety Report 8383587-6 (Version None)
Quarter: 2012Q2

REPORT INFORMATION
  Report Type: 
  Country: None (occurrence: None)
  Receive Date: 20120524
  Receipt Date: 20120511
  Transmission Date: 20120825
  Serious: No
  Sender: FDA-Public Use
  Company Number: US-ASTRAZENECA-2010SE21434

PATIENT
  Age: 63 Year
  Sex: Female
  Weight: 81.6 kg

DRUGS (9)
  1. SYMBICORT [Suspect]
     Indication: CHRONIC OBSTRUCTIVE PULMONARY DISEASE
     Dosage: 2PUFFS IN AM AND 2 PUFFS IN PM
     Route: 055
  2. ENALAP/HCTZ [Concomitant]
     Indication: BLOOD PRESSURE ABNORMAL
  3. SYMBICORT [Suspect]
     Dosage: 160 MCG BID
     Route: 055
     Dates: start: 20100301, end: 20100301
  4. ATROVENT [Concomitant]
  5. SYMBICORT [Suspect]
     Dosage: 160 MCG BID
     Route: 055
     Dates: start: 20100501
  6. ENALAP/HCTZ [Concomitant]
     Indication: DIURETIC THERAPY
  7. SYMBICORT [Suspect]
     Dosage: 320 MCGS DAILY
     Route: 055
  8. SYMBICORT [Suspect]
     Dosage: 2 PUFFS AT BEDTIME
     Route: 055
  9. OTC SINUS MEDICATION [Concomitant]
     Indication: SINUS DISORDER
     Dosage: PRN
     Route: 048

REACTIONS (4)
  - DIZZINESS [None]
  - FEELING ABNORMAL [None]
  - DYSPNOEA [None]
  - INTENTIONAL DRUG MISUSE [None]
